FAERS Safety Report 21699851 (Version 1)
Quarter: 2022Q4

REPORT INFORMATION
  Report Type: Spontaneous
  Country: PL (occurrence: PL)
  Receive Date: 20221208
  Receipt Date: 20221208
  Transmission Date: 20230112
  Serious: Yes (Life-Threatening)
  Sender: FDA-Public Use
  Company Number: None

PATIENT
  Age: 60 Year
  Sex: Female
  Weight: 74 kg

DRUGS (1)
  1. CISPLATIN [Suspect]
     Active Substance: CISPLATIN
     Indication: Endometrial cancer
     Dates: start: 20180608, end: 20180608

REACTIONS (5)
  - Burning sensation [Recovered/Resolved]
  - Heart rate abnormal [Recovered/Resolved]
  - Tinnitus [Recovered/Resolved]
  - Blood pressure abnormal [Recovered/Resolved]
  - Hypersensitivity [Recovered/Resolved]

NARRATIVE: CASE EVENT DATE: 20180608
